FAERS Safety Report 8949482 (Version 2)
Quarter: 2013Q1

REPORT INFORMATION
  Report Type: Spontaneous
  Country: US (occurrence: US)
  Receive Date: 20121206
  Receipt Date: 20130115
  Transmission Date: 20140127
  Serious: Yes (Other)
  Sender: FDA-Public Use
  Company Number: US-PFIZER INC-2012304763

PATIENT
  Age: 53 Year
  Sex: Female
  Weight: 102 kg

DRUGS (5)
  1. NEURONTIN [Suspect]
     Indication: NEURALGIA
     Dosage: ONE CAPSULE DAILY
     Route: 048
  2. NEURONTIN [Suspect]
     Dosage: ONE CAPSULE TWO TIMES A DAY
  3. VICODIN [Suspect]
     Dosage: 500 MG, AS NEEDED
  4. ALEVE [Suspect]
     Dosage: 440 MG, 1X/DAY
  5. SYNTHROID [Concomitant]
     Indication: THYROID DISORDER
     Dosage: 12.5 UG, DAILY

REACTIONS (3)
  - Fall [Unknown]
  - Rotator cuff syndrome [Unknown]
  - Drug ineffective [Unknown]
